FAERS Safety Report 17245241 (Version 1)
Quarter: 2020Q1

REPORT INFORMATION
  Report Type: Spontaneous
  Country: GB (occurrence: GB)
  Receive Date: 20200108
  Receipt Date: 20200108
  Transmission Date: 20200409
  Serious: Yes (Hospitalization)
  Sender: FDA-Public Use
  Company Number: GB-ACCORD-168284

PATIENT
  Age: 70 Year
  Sex: Male

DRUGS (17)
  1. GLUCOSE/GLUCOSE MONOHYDRATE/GLUCOSE OXIDASE [Concomitant]
     Active Substance: DEXTROSE
  2. GLYCERYL TRINITRATE [Concomitant]
     Active Substance: NITROGLYCERIN
     Dosage: SPRAY
  3. LACTULOSE. [Concomitant]
     Active Substance: LACTULOSE
  4. BISOPROLOL [Concomitant]
     Active Substance: BISOPROLOL
  5. HUMULIN M3 [Concomitant]
     Active Substance: INSULIN HUMAN
  6. MIRTAZAPINE. [Concomitant]
     Active Substance: MIRTAZAPINE
  7. SIMVASTATIN. [Concomitant]
     Active Substance: SIMVASTATIN
  8. CYANOCOBALAMIN/CYANOCOBALAMIN ZINC TANNATE/CYANOCOBALAMIN-TANNIN COMPLEX [Concomitant]
     Active Substance: CYANOCOBALAMIN
  9. BETAHISTINE [Concomitant]
     Active Substance: BETAHISTINE
  10. METFORMIN [Concomitant]
     Active Substance: METFORMIN HYDROCHLORIDE
  11. PARACETAMOL [Concomitant]
     Active Substance: ACETAMINOPHEN
  12. LINAGLIPTIN [Concomitant]
     Active Substance: LINAGLIPTIN
  13. CLOPIDOGREL [Concomitant]
     Active Substance: CLOPIDOGREL BISULFATE
  14. ISOSORBIDE DINITRATE. [Concomitant]
     Active Substance: ISOSORBIDE DINITRATE
  15. LOSARTAN. [Concomitant]
     Active Substance: LOSARTAN
  16. AMLODIPINE [Suspect]
     Active Substance: AMLODIPINE BESYLATE
     Indication: HYPERTENSION
     Dosage: 5MG
     Route: 048
  17. LANSOPRAZOLE. [Concomitant]
     Active Substance: LANSOPRAZOLE

REACTIONS (1)
  - Urinary retention [Recovering/Resolving]
